FAERS Safety Report 19869216 (Version 1)
Quarter: 2021Q3

REPORT INFORMATION
  Report Type: Spontaneous
  Country: NL (occurrence: NL)
  Receive Date: 20210922
  Receipt Date: 20210922
  Transmission Date: 20211014
  Serious: Yes (Life-Threatening, Other)
  Sender: FDA-Public Use
  Company Number: NL-FRESENIUS KABI-FK202110157

PATIENT
  Age: 5 Year

DRUGS (5)
  1. ROPIVACAINE (MANUFACTURER UNKNOWN) [Suspect]
     Active Substance: ROPIVACAINE
     Indication: POSTOPERATIVE ANALGESIA
     Route: 065
  2. PHENYLEPHRINE [Concomitant]
     Active Substance: PHENYLEPHRINE HYDROCHLORIDE
     Indication: BRADYCARDIA
     Route: 065
  3. IOBITRIDOL [Suspect]
     Active Substance: IOBITRIDOL
     Indication: POSTOPERATIVE ANALGESIA
     Route: 065
  4. POLIDOCANOL. [Suspect]
     Active Substance: POLIDOCANOL
     Indication: POSTOPERATIVE ANALGESIA
     Route: 065
  5. ATROPINE. [Concomitant]
     Active Substance: ATROPINE
     Indication: BRADYCARDIA
     Route: 065

REACTIONS (2)
  - Anaphylactic reaction [Recovered/Resolved]
  - Hypovolaemic shock [Recovered/Resolved]
